FAERS Safety Report 7705796-9 (Version None)
Quarter: 2011Q3

REPORT INFORMATION
  Report Type: 
  Country: None (occurrence: None)
  Receive Date: 20110824
  Receipt Date: 20110824
  Transmission Date: 20111222
  Serious: Yes (Life-Threatening, Hospitalization)
  Sender: FDA-Public Use
  Company Number: None

PATIENT
  Sex: Female
  Weight: 57.152 kg

DRUGS (5)
  1. CRYSTALLINE VIT B12 INJ [Concomitant]
     Route: 058
  2. LACULOSE [Concomitant]
  3. ANTIBIOTICS, [Concomitant]
  4. SYNTHROID [Concomitant]
     Route: 048
  5. SEROQUEL [Suspect]
     Indication: DEPRESSION
     Dosage: `200 MG
     Route: 048

REACTIONS (9)
  - FALL [None]
  - THINKING ABNORMAL [None]
  - TOXICITY TO VARIOUS AGENTS [None]
  - WEIGHT INCREASED [None]
  - WHITE BLOOD CELL COUNT INCREASED [None]
  - MUSCLE ATROPHY [None]
  - TYPE 1 DIABETES MELLITUS [None]
  - BALANCE DISORDER [None]
  - ANAEMIA [None]
